FAERS Safety Report 6802661-6 (Version None)
Quarter: 2010Q2

REPORT INFORMATION
  Report Type: 
  Country: None (occurrence: None)
  Receive Date: 20100628
  Receipt Date: 20100626
  Transmission Date: 20101027
  Serious: Yes (Hospitalization)
  Sender: FDA-Public Use
  Company Number: PHHO2009NL15015

PATIENT
  Sex: Female

DRUGS (2)
  1. AFINITOR [Suspect]
     Indication: PANCREATIC NEUROENDOCRINE TUMOUR
     Dosage: 10 MG DAILY
     Route: 048
     Dates: start: 20080627, end: 20091201
  2. AFINITOR [Suspect]
     Dosage: 10 MG DAILY
     Route: 048
     Dates: start: 20091209

REACTIONS (6)
  - ARTHRALGIA [None]
  - ARTHRITIS BACTERIAL [None]
  - ERYTHEMA [None]
  - JOINT FLUID DRAINAGE [None]
  - JOINT SWELLING [None]
  - JOINT WARMTH [None]
